FAERS Safety Report 11465252 (Version 2)
Quarter: 2015Q3

REPORT INFORMATION
  Report Type: Spontaneous
  Country: BE (occurrence: BE)
  Receive Date: 20150907
  Receipt Date: 20150911
  Transmission Date: 20151125
  Serious: Yes (Life-Threatening, Hospitalization, Congenital Anomaly, Other)
  Sender: FDA-Public Use
  Company Number: BE-UCBSA-2015027790

PATIENT
  Sex: Female

DRUGS (10)
  1. CLAMOXYL [Suspect]
     Active Substance: AMOXICILLIN\CLAVULANIC ACID
     Indication: PRODUCT USED FOR UNKNOWN INDICATION
     Dosage: 1 G, 3X/DAY (TID)
     Route: 048
     Dates: start: 20150311, end: 20150317
  2. ZANTAC [Concomitant]
     Active Substance: RANITIDINE HYDROCHLORIDE
     Indication: PROPHYLAXIS
     Dosage: 150 MG, ONCE DAILY (QD)
     Route: 048
     Dates: start: 201501
  3. PANTOMED [Concomitant]
     Active Substance: DEXPANTHENOL
     Indication: PRODUCT USED FOR UNKNOWN INDICATION
     Dosage: 40 MG, ONCE DAILY (QD)
     Route: 048
     Dates: start: 20150309
  4. NOLVADEX D [Concomitant]
     Active Substance: TAMOXIFEN CITRATE
     Indication: PRODUCT USED FOR UNKNOWN INDICATION
     Dosage: 20 MG, ONCE DAILY (QD)
     Route: 048
     Dates: start: 20121126, end: 20150216
  5. NEUROBION [Concomitant]
     Active Substance: CYANOCOBALAMIN\PYRIDOXINE\THIAMINE
     Indication: VITAMIN B12 DECREASED
     Dosage: 3 ML, MONTHLY (QM)
     Route: 030
     Dates: start: 20121126
  6. OMEPRAZOLE. [Concomitant]
     Active Substance: OMEPRAZOLE
     Indication: PRODUCT USED FOR UNKNOWN INDICATION
     Dosage: 20 MG, ONCE DAILY (QD)
     Route: 048
     Dates: start: 20150305, end: 20150308
  7. AFATINIB [Suspect]
     Active Substance: AFATINIB
     Indication: PRODUCT USED FOR UNKNOWN INDICATION
     Dosage: 30MG
     Dates: start: 20150217, end: 2015
  8. MEDROL [Concomitant]
     Active Substance: METHYLPREDNISOLONE
     Indication: PRODUCT USED FOR UNKNOWN INDICATION
     Dosage: HALF A TABLET ON EVEN DAYS AND QUARTER TABLET ON UNEVEN DAYS
     Route: 048
     Dates: start: 201501
  9. KEPPRA [Suspect]
     Active Substance: LEVETIRACETAM
     Indication: EPILEPSY
     Dosage: 500 MG, 2X/DAY (BID)
     Route: 048
     Dates: start: 20150112, end: 20150323
  10. FEMARA [Concomitant]
     Active Substance: LETROZOLE
     Indication: BREAST CANCER
     Dosage: 2.5 MG, ONCE DAILY (QD)
     Route: 048
     Dates: start: 20150217

REACTIONS (12)
  - Decreased appetite [Unknown]
  - Dysphagia [Unknown]
  - Epidermolysis [Unknown]
  - Pruritus [Unknown]
  - Haemoptysis [Unknown]
  - Pain of skin [Unknown]
  - Conjunctivitis [Unknown]
  - Mucosal inflammation [Unknown]
  - Toxic epidermal necrolysis [Recovered/Resolved]
  - Erythema induratum [Unknown]
  - Fatigue [Unknown]
  - Intertrigo [Unknown]

NARRATIVE: CASE EVENT DATE: 2015
